FAERS Safety Report 15783636 (Version 1)
Quarter: 2019Q1

REPORT INFORMATION
  Report Type: Report from Study
  Country: US (occurrence: US)
  Receive Date: 20190102
  Receipt Date: 20190102
  Transmission Date: 20190417
  Serious: Yes (Hospitalization)
  Sender: FDA-Public Use
  Company Number: US-SHIRE-US201848337

PATIENT
  Age: 4 Year
  Sex: Female
  Weight: 23 kg

DRUGS (7)
  1. VIGAMOX [Concomitant]
     Active Substance: MOXIFLOXACIN HYDROCHLORIDE
     Indication: ILL-DEFINED DISORDER
  2. TEDUGLUTIDE [Suspect]
     Active Substance: TEDUGLUTIDE
     Indication: SHORT-BOWEL SYNDROME
     Dosage: 11 UNITS
     Route: 058
     Dates: start: 20181210
  3. PREVACID [Concomitant]
     Active Substance: LANSOPRAZOLE
     Indication: PROPHYLAXIS
  4. KEPPRA [Concomitant]
     Active Substance: LEVETIRACETAM
     Indication: ILL-DEFINED DISORDER
  5. XALATAN [Concomitant]
     Active Substance: LATANOPROST
     Indication: ILL-DEFINED DISORDER
  6. PEPCID [Concomitant]
     Active Substance: FAMOTIDINE
     Indication: PROPHYLAXIS
  7. OXYGEN. [Concomitant]
     Active Substance: OXYGEN
     Indication: ILL-DEFINED DISORDER

REACTIONS (1)
  - Cholangitis [Recovered/Resolved]

NARRATIVE: CASE EVENT DATE: 20181212
